FAERS Safety Report 7574478-9 (Version None)
Quarter: 2011Q2

REPORT INFORMATION
  Report Type: 
  Country: None (occurrence: None)
  Receive Date: 20110627
  Receipt Date: 20110621
  Transmission Date: 20111010
  Serious: Yes (Hospitalization)
  Sender: FDA-Public Use
  Company Number: US-ABBOTT-10P-163-0661491-00

PATIENT
  Sex: Female
  Weight: 96.702 kg

DRUGS (12)
  1. HUMIRA [Suspect]
     Route: 058
     Dates: start: 20100607
  2. PREDNISONE [Suspect]
     Indication: RHEUMATOID ARTHRITIS
     Route: 048
     Dates: end: 20100701
  3. PLAQUENIL [Concomitant]
     Indication: RHEUMATOID ARTHRITIS
  4. CRESTOR [Concomitant]
     Indication: BLOOD CHOLESTEROL INCREASED
     Dates: start: 20100101
  5. HUMIRA [Suspect]
     Indication: RHEUMATOID ARTHRITIS
     Route: 058
     Dates: start: 20090520, end: 20090602
  6. HUMIRA [Suspect]
     Route: 058
     Dates: start: 20100125, end: 20100607
  7. LEXAPRO [Concomitant]
     Indication: DEPRESSION
  8. CRESTOR [Concomitant]
     Dates: end: 20091101
  9. ASPIRIN [Concomitant]
     Indication: ARTHRALGIA
     Route: 048
  10. LOVAZA [Concomitant]
     Indication: BLOOD TRIGLYCERIDES INCREASED
     Route: 048
  11. METHOTREXATE [Concomitant]
     Indication: RHEUMATOID ARTHRITIS
  12. LEUCOVORIN CALCIUM [Concomitant]
     Indication: MINERAL SUPPLEMENTATION

REACTIONS (15)
  - COLITIS [None]
  - WEIGHT INCREASED [None]
  - VIRAL INFECTION [None]
  - HEPATIC ENZYME INCREASED [None]
  - HEADACHE [None]
  - PAIN [None]
  - GENERALISED OEDEMA [None]
  - JOINT SWELLING [None]
  - LARGE INTESTINAL ULCER [None]
  - ABDOMINAL RIGIDITY [None]
  - FATIGUE [None]
  - PYREXIA [None]
  - WHITE BLOOD CELL COUNT INCREASED [None]
  - CLOSTRIDIAL INFECTION [None]
  - CHILLS [None]
